FAERS Safety Report 7274489-7 (Version None)
Quarter: 2011Q1

REPORT INFORMATION
  Report Type: 
  Country: None (occurrence: None)
  Receive Date: 20110204
  Receipt Date: 20110131
  Transmission Date: 20110831
  Serious: Yes (Hospitalization, Other)
  Sender: FDA-Public Use
  Company Number: US-ABBOTT-11P-163-0701982-00

PATIENT
  Age: 57 Year
  Sex: Female

DRUGS (13)
  1. LEVOTHROID [Concomitant]
     Indication: HYPOTHYROIDISM
  2. LISINOPRIL [Concomitant]
     Indication: HYPERTENSION
  3. SINGULAIR [Concomitant]
     Indication: HYPERSENSITIVITY
  4. OMEPRAZOLE [Concomitant]
     Indication: GASTROOESOPHAGEAL REFLUX DISEASE
  5. HUMIRA [Suspect]
     Indication: RHEUMATOID ARTHRITIS
     Dates: start: 20080101, end: 20101101
  6. LEFLUNOMIDE [Concomitant]
     Indication: RHEUMATOID ARTHRITIS
  7. SPIRONOLACTONE [Concomitant]
     Indication: OEDEMA
  8. LIPITOR [Concomitant]
     Indication: BLOOD CHOLESTEROL INCREASED
  9. LASIX [Concomitant]
     Indication: OEDEMA
  10. PREDNISONE [Concomitant]
     Indication: RHEUMATOID ARTHRITIS
  11. PEPCID OTC [Concomitant]
     Indication: GASTROOESOPHAGEAL REFLUX DISEASE
  12. PRILOSEC [Concomitant]
     Indication: GASTROOESOPHAGEAL REFLUX DISEASE
  13. KLOR-CON [Concomitant]
     Indication: MINERAL SUPPLEMENTATION

REACTIONS (2)
  - ARRHYTHMIA [None]
  - CORONARY ARTERY OCCLUSION [None]
